FAERS Safety Report 4410894-1 (Version None)
Quarter: 2004Q3

REPORT INFORMATION
  Report Type: 
  Country: None (occurrence: None)
  Receive Date: 20040728
  Receipt Date: 20040728
  Transmission Date: 20050211
  Serious: Yes (Other)
  Sender: FDA-Public Use
  Company Number: None

PATIENT
  Age: 56 Year
  Sex: Female
  Weight: 63.5036 kg

DRUGS (11)
  1. LEVAQUIN [Suspect]
     Dosage: 750 MG ONCE DAILY ORALLY
     Route: 048
     Dates: start: 20040602, end: 20040611
  2. LEVAQUIN [Suspect]
     Dosage: 750 MG ONCE DAILY ORALLY
     Route: 048
     Dates: start: 20040616, end: 20040621
  3. SYNTHROID [Concomitant]
  4. NEXIUM [Concomitant]
  5. ASPIRIN [Concomitant]
  6. METOPROLOL [Concomitant]
  7. ZOCOR [Concomitant]
  8. FEMHRT [Concomitant]
  9. CALCIUM [Concomitant]
  10. VITAMIN E [Concomitant]
  11. MULTI-VITAMIN [Concomitant]

REACTIONS (4)
  - INFECTION [None]
  - MUSCLE CRAMP [None]
  - MYALGIA [None]
  - PAIN IN EXTREMITY [None]
